FAERS Safety Report 10068609 (Version 2)
Quarter: 2014Q2

REPORT INFORMATION
  Report Type: Report from Study
  Country: US (occurrence: US)
  Receive Date: 20140409
  Receipt Date: 20140416
  Transmission Date: 20141212
  Serious: Yes (Other)
  Sender: FDA-Public Use
  Company Number: PHEH2014US006696

PATIENT
  Age: 76 Year
  Sex: Male
  Weight: 96 kg

DRUGS (11)
  1. SANDOSTATIN LAR DEPOT [Suspect]
     Indication: METASTATIC CARCINOID TUMOUR
     Dosage: 30 MG, EVERY FOUR WEEKS
     Route: 030
     Dates: start: 2011, end: 201312
  2. SANDOSTATIN LAR DEPOT [Suspect]
     Indication: DIARRHOEA
     Dosage: 30 MG, EVERY FOUR WEEKS
     Route: 030
     Dates: start: 20140228
  3. NORVASC [Concomitant]
     Dosage: 1 DF, QD
     Route: 048
  4. FAMOTIDINE [Concomitant]
     Dosage: 40 MG, QD
     Route: 048
  5. METFORMIN [Concomitant]
     Dosage: 1 DF, TID
     Route: 048
  6. ASPIRIN [Concomitant]
     Dosage: 1 DF, QD
     Route: 048
  7. MULTI-VIT [Concomitant]
     Dosage: 1 DF, QD
  8. CALCIUM CARBONATE/VITAMIN D3 [Concomitant]
     Dosage: 1 DF, QD
     Route: 048
  9. FERROUS SULFATE [Concomitant]
     Dosage: 324 MG, (65 MG IRON) TID
  10. NORMAL SALINE [Concomitant]
     Dosage: 10 ML, UNK
  11. VISIPAQUE [Concomitant]
     Dosage: UNK UKN, UNK

REACTIONS (12)
  - Volvulus of small bowel [Unknown]
  - Abdominal adhesions [Unknown]
  - Abdominal pain [Recovered/Resolved]
  - Vomiting [Unknown]
  - Small intestinal obstruction [Recovered/Resolved]
  - Abdominal hernia [Unknown]
  - Abdominal distension [Unknown]
  - Diverticulum intestinal [Unknown]
  - Nephrolithiasis [Unknown]
  - Hiatus hernia [Unknown]
  - Oedema peripheral [Unknown]
  - Blood pressure systolic increased [Unknown]
